FAERS Safety Report 24618243 (Version 1)
Quarter: 2024Q4

REPORT INFORMATION
  Report Type: Spontaneous
  Country: US (occurrence: US)
  Receive Date: 20241114
  Receipt Date: 20241114
  Transmission Date: 20250114
  Serious: No
  Sender: TEVA
  Company Number: US-TEVA-VS-3258784

PATIENT
  Age: 54 Year
  Sex: Male

DRUGS (1)
  1. CINQAIR [Suspect]
     Active Substance: RESLIZUMAB
     Indication: Asthma
     Route: 042
     Dates: start: 2023

REACTIONS (4)
  - Dyspnoea [Not Recovered/Not Resolved]
  - Insurance issue [Unknown]
  - Nasal congestion [Not Recovered/Not Resolved]
  - Wheezing [Not Recovered/Not Resolved]
